FAERS Safety Report 15266062 (Version 1)
Quarter: 2018Q3

REPORT INFORMATION
  Report Type: Report from Study
  Country: DE (occurrence: DE)
  Receive Date: 20180810
  Receipt Date: 20180810
  Transmission Date: 20181010
  Serious: Yes (Hospitalization, Other)
  Sender: FDA-Public Use
  Company Number: DE-OTSUKA-2018_000451

PATIENT
  Age: 24 Year
  Sex: Female

DRUGS (7)
  1. TOLVAPTAN [Suspect]
     Active Substance: TOLVAPTAN
     Dosage: 30 MG(EVENING), QD
     Route: 048
     Dates: start: 20180503
  2. TOLVAPTAN [Suspect]
     Active Substance: TOLVAPTAN
     Dosage: 90 MG(MORNING), QD
     Route: 048
     Dates: start: 20180101
  3. TOLVAPTAN [Suspect]
     Active Substance: TOLVAPTAN
     Dosage: 15 MG(EVENING), QD
     Route: 048
     Dates: start: 20160608, end: 20171117
  4. TOLVAPTAN [Suspect]
     Active Substance: TOLVAPTAN
     Dosage: 30 MG(EVENING), QD
     Route: 048
     Dates: start: 20180101
  5. RAMIPRIL. [Concomitant]
     Active Substance: RAMIPRIL
     Indication: HYPERTENSION
     Dosage: 2.5 MG, QD
     Route: 048
     Dates: start: 2016
  6. TOLVAPTAN [Suspect]
     Active Substance: TOLVAPTAN
     Indication: CONGENITAL CYSTIC KIDNEY DISEASE
     Dosage: 45 MG(MORNING), QD
     Route: 048
     Dates: start: 20160608, end: 20171117
  7. TOLVAPTAN [Suspect]
     Active Substance: TOLVAPTAN
     Dosage: 90 MG(MORNING), QD
     Route: 048
     Dates: start: 20180503

REACTIONS (6)
  - Meniscus injury [Recovered/Resolved]
  - White matter lesion [Not Recovered/Not Resolved]
  - Flank pain [Recovered/Resolved]
  - Presyncope [Recovered/Resolved]
  - Viral infection [Recovered/Resolved]
  - Ligament sprain [Recovered/Resolved]

NARRATIVE: CASE EVENT DATE: 20170811
